FAERS Safety Report 6469586-X (Version None)
Quarter: 2009Q4

REPORT INFORMATION
  Report Type: 
  Country: None (occurrence: None)
  Receive Date: 20091203
  Receipt Date: 20091125
  Transmission Date: 20100525
  Serious: Yes (Other)
  Sender: FDA-Public Use
  Company Number: US-TEVA-036609

PATIENT
  Sex: Female

DRUGS (4)
  1. CLARAVIS [Suspect]
     Dosage: 40 MG, QD
     Route: 048
     Dates: start: 20080809, end: 20081103
  2. CLARAVIS [Suspect]
     Dosage: 40 MG, QD
     Route: 048
     Dates: start: 20081021, end: 20081103
  3. ACCUTANE [Suspect]
     Dosage: 40 MG, QD
     Route: 048
     Dates: start: 20080923
  4. ORAL CONTRACEPTIVE NOS [Concomitant]
     Indication: CONTRACEPTION
     Route: 048

REACTIONS (4)
  - DRUG EXPOSURE DURING PREGNANCY [None]
  - TREATMENT NONCOMPLIANCE [None]
  - UNINTENDED PREGNANCY [None]
  - VOMITING [None]
